FAERS Safety Report 8796617 (Version 1)
Quarter: 2012Q4

REPORT INFORMATION
  Report Type: 
  Country: US (occurrence: US)
  Receive Date: 20120919
  Receipt Date: 20120919
  Transmission Date: 20130627
  Serious: Yes (Other)
  Sender: FDA-Public Use
  Company Number: US-009507513-1209USA006035

PATIENT
  Age: 58 Year
  Sex: Male

DRUGS (1)
  1. SAPHRIS [Suspect]
     Dosage: 5 mg, qd
     Route: 060

REACTIONS (1)
  - Arthralgia [Unknown]
